FAERS Safety Report 8967916 (Version 1)
Quarter: 2012Q4

REPORT INFORMATION
  Report Type: 
  Country: US (occurrence: US)
  Receive Date: 20121218
  Receipt Date: 20121218
  Transmission Date: 20130627
  Serious: Yes (Hospitalization)
  Sender: FDA-Public Use
  Company Number: US-009507513-1212USA003080

PATIENT
  Age: 65 Year
  Sex: Male
  Weight: 77.3 kg

DRUGS (14)
  1. LISINOPRIL [Suspect]
     Route: 048
  2. ZOCOR [Suspect]
     Route: 065
  3. RITUXIMAB [Suspect]
     Indication: RHEUMATOID ARTHRITIS
     Dosage: 1000 mg, UNK
     Route: 042
     Dates: start: 20071003
  4. COREG [Suspect]
  5. PREDNISONE [Suspect]
  6. LANOXIN [Suspect]
  7. AMIODARONE [Suspect]
  8. VICODIN [Suspect]
  9. AMBIEN [Suspect]
  10. NEXIUM [Suspect]
  11. COUMADIN [Suspect]
  12. LASIX (FUROSEMIDE) [Suspect]
  13. ASPIRIN [Suspect]
  14. ATIVAN [Suspect]

REACTIONS (1)
  - Pneumonia [Recovered/Resolved]
